FAERS Safety Report 17179360 (Version 1)
Quarter: 2019Q4

REPORT INFORMATION
  Report Type: Spontaneous
  Country: JP (occurrence: JP)
  Receive Date: 20191219
  Receipt Date: 20191219
  Transmission Date: 20200122
  Serious: Yes (Death, Life-Threatening, Hospitalization)
  Sender: FDA-Public Use
  Company Number: JP-ELI_LILLY_AND_COMPANY-JP201912009451

PATIENT
  Sex: Male

DRUGS (2)
  1. PACLITAXEL. [Suspect]
     Active Substance: PACLITAXEL
     Indication: OROPHARYNGEAL CANCER
     Dosage: -1 UNK, WEEKLY (1/W)
     Route: 041
     Dates: end: 20191010
  2. ERBITUX [Suspect]
     Active Substance: CETUXIMAB
     Indication: OROPHARYNGEAL CANCER
     Dosage: 250 MG/M2, WEEKLY (1/W)
     Route: 041
     Dates: end: 20191010

REACTIONS (6)
  - Physical deconditioning [Unknown]
  - Interstitial lung disease [Fatal]
  - Off label use [Unknown]
  - Vomiting [Unknown]
  - Hypoaesthesia [Unknown]
  - Pneumonia aspiration [Fatal]

NARRATIVE: CASE EVENT DATE: 20191016
